FAERS Safety Report 7431929-8 (Version None)
Quarter: 2011Q2

REPORT INFORMATION
  Report Type: 
  Country: None (occurrence: None)
  Receive Date: 20110422
  Receipt Date: 20110414
  Transmission Date: 20111010
  Serious: Yes (Hospitalization, Other)
  Sender: FDA-Public Use
  Company Number: JP-JNJFOC-20100510835

PATIENT
  Age: 59 Year
  Sex: Female
  Weight: 55 kg

DRUGS (13)
  1. DOXORUBICIN HCL [Suspect]
     Indication: OVARIAN CANCER RECURRENT
     Dosage: CYCLE 1
     Route: 042
  2. DOXORUBICIN HCL [Suspect]
     Route: 042
  3. AZUNOL [Concomitant]
     Indication: PROPHYLAXIS
     Route: 049
  4. DOXORUBICIN HCL [Suspect]
     Dosage: CYCLE 2
     Route: 042
  5. PYDOXAL [Concomitant]
     Indication: PALMAR-PLANTAR ERYTHRODYSAESTHESIA SYNDROME
     Route: 048
  6. BROTIZOLAM [Concomitant]
     Indication: DEPRESSION
     Route: 048
  7. HIRUDOID CREAM [Concomitant]
     Indication: PALMAR-PLANTAR ERYTHRODYSAESTHESIA SYNDROME
     Route: 061
  8. DAI-KENCHU-TO [Concomitant]
     Indication: PROPHYLAXIS
     Route: 048
  9. TRYPTANOL [Concomitant]
     Indication: DEPRESSION
     Route: 048
  10. DOXORUBICIN HCL [Suspect]
     Route: 042
  11. PRAVASTATIN SODIUM [Concomitant]
     Indication: LIPID METABOLISM DISORDER
     Route: 048
  12. MAGMITT [Concomitant]
     Indication: PROPHYLAXIS
     Route: 048
  13. DOXORUBICIN HCL [Suspect]
     Route: 042

REACTIONS (3)
  - NEUTROPHIL COUNT DECREASED [None]
  - INTESTINAL OBSTRUCTION [None]
  - PLATELET COUNT DECREASED [None]
